FAERS Safety Report 6896271-2 (Version None)
Quarter: 2010Q3

REPORT INFORMATION
  Report Type: 
  Country: None (occurrence: None)
  Receive Date: 20100802
  Receipt Date: 20100723
  Transmission Date: 20110219
  Serious: Yes (Other)
  Sender: FDA-Public Use
  Company Number: B0666843A

PATIENT
  Sex: Male

DRUGS (4)
  1. DEROXAT [Suspect]
     Dosage: 1UNIT PER DAY
     Route: 048
     Dates: start: 20100115, end: 20100509
  2. LEXOMIL [Suspect]
     Indication: ANXIETY
     Route: 048
  3. PANTOPRAZOLE SODIUM [Concomitant]
     Route: 065
  4. DOMPERIDONE [Concomitant]
     Route: 065

REACTIONS (10)
  - APATHY [None]
  - ASTHENIA [None]
  - DISTURBANCE IN ATTENTION [None]
  - DYSARTHRIA [None]
  - DYSPHEMIA [None]
  - DYSPHONIA [None]
  - GAIT DISTURBANCE [None]
  - MALAISE [None]
  - PSYCHOMOTOR RETARDATION [None]
  - SOMNOLENCE [None]
